FAERS Safety Report 10310737 (Version 1)
Quarter: 2014Q3

REPORT INFORMATION
  Report Type: Spontaneous
  Country: GB (occurrence: GB)
  Receive Date: 20140717
  Receipt Date: 20140717
  Transmission Date: 20150326
  Serious: Yes (Hospitalization)
  Sender: FDA-Public Use
  Company Number: GB-SA-2014SA093787

PATIENT
  Age: 22 Year
  Sex: Female

DRUGS (4)
  1. MOMETASONE [Suspect]
     Active Substance: MOMETASONE
     Indication: SEASONAL ALLERGY
     Dosage: 50MG 2 METERED DOSES TWICE DAILY
     Route: 045
     Dates: start: 20140612, end: 20140629
  2. NEDOCROMIL SODIUM. [Suspect]
     Active Substance: NEDOCROMIL SODIUM
     Indication: SEASONAL ALLERGY
     Dosage: 2 DROPS IN BOTH EYES TWICE DAILY
     Route: 047
     Dates: start: 20140612, end: 20140629
  3. ANTIHISTAMINES [Concomitant]
     Active Substance: ANTIHISTAMINES NOS
  4. FEXOFENADINE HYDROCHLORIDE. [Suspect]
     Active Substance: FEXOFENADINE HYDROCHLORIDE
     Indication: SEASONAL ALLERGY
     Route: 048
     Dates: start: 20140612, end: 20140629

REACTIONS (7)
  - Chest discomfort [Recovered/Resolved]
  - Dizziness [Not Recovered/Not Resolved]
  - Headache [Not Recovered/Not Resolved]
  - Dyskinesia [Not Recovered/Not Resolved]
  - Nausea [Recovering/Resolving]
  - Vision blurred [Recovered/Resolved]
  - Palpitations [Recovered/Resolved]

NARRATIVE: CASE EVENT DATE: 20140629
